FAERS Safety Report 4970661-7 (Version None)
Quarter: 2006Q2

REPORT INFORMATION
  Report Type: 
  Country: None (occurrence: None)
  Receive Date: 20060412
  Receipt Date: 20050112
  Transmission Date: 20061013
  Serious: Yes (Hospitalization)
  Sender: FDA-Public Use
  Company Number: US-MERCK-0501USA01864

PATIENT
  Age: 48 Year
  Sex: Female
  Weight: 71 kg

DRUGS (3)
  1. VIOXX [Suspect]
     Indication: ARTHRALGIA
     Route: 048
     Dates: start: 20010101, end: 20020101
  2. VIOXX [Suspect]
     Indication: SWELLING
     Route: 048
     Dates: start: 20010101, end: 20020101
  3. ADVIL [Concomitant]
     Route: 065

REACTIONS (1)
  - MYOCARDIAL INFARCTION [None]
